FAERS Safety Report 5693749-4 (Version None)
Quarter: 2008Q2

REPORT INFORMATION
  Report Type: 
  Country: None (occurrence: None)
  Receive Date: 20080403
  Receipt Date: 20080328
  Transmission Date: 20081010
  Serious: Yes (Hospitalization, Disabling)
  Sender: FDA-Public Use
  Company Number: PHBS2006JP07228

PATIENT
  Age: 72 Year
  Sex: Female
  Weight: 56 kg

DRUGS (3)
  1. ANAESTHETICS, LOCAL [Concomitant]
     Route: 065
     Dates: start: 20060518
  2. HYSRON [Concomitant]
     Indication: METASTASES TO BONE
     Dosage: 1.2 G/D
     Route: 065
  3. AREDIA [Suspect]
     Indication: METASTASES TO BONE
     Dosage: 30 MG/2W
     Route: 042
     Dates: start: 20020201

REACTIONS (8)
  - DEBRIDEMENT [None]
  - OSTEOMYELITIS [None]
  - OSTEONECROSIS [None]
  - PURULENT DISCHARGE [None]
  - SEQUESTRECTOMY [None]
  - SWELLING [None]
  - TOOTH LOSS [None]
  - TOOTH REPAIR [None]
